FAERS Safety Report 5129154-9 (Version None)
Quarter: 2006Q4

REPORT INFORMATION
  Report Type: 
  Country: None (occurrence: None)
  Receive Date: 20061011
  Receipt Date: 20061004
  Transmission Date: 20070319
  Serious: Yes (Other)
  Sender: FDA-Public Use
  Company Number: DE-2006-029532

PATIENT
  Age: 46 Year
  Sex: Female

DRUGS (1)
  1. MIRENA [Suspect]
     Indication: MENORRHAGIA
     Dosage: 20 UG/DAY, CONT, INTRA-UTERINE
     Route: 015
     Dates: start: 20040602, end: 20060612

REACTIONS (10)
  - CERVICAL POLYP [None]
  - CERVICITIS [None]
  - COMPLICATION OF DEVICE REMOVAL [None]
  - DEPRESSION SUICIDAL [None]
  - ENDOMETRIAL HYPERPLASIA [None]
  - HAEMORRHAGE [None]
  - MENOMETRORRHAGIA [None]
  - METRORRHAGIA [None]
  - VAGINAL HAEMORRHAGE [None]
  - VAGINITIS BACTERIAL [None]
